FAERS Safety Report 25884898 (Version 1)
Quarter: 2025Q4

REPORT INFORMATION
  Report Type: Spontaneous
  Country: US (occurrence: None)
  Receive Date: 20251003
  Receipt Date: 20251003
  Transmission Date: 20260117
  Serious: Yes (Death)
  Sender: FDA-CTU
  Company Number: None

PATIENT
  Age: 56 Year
  Sex: Male

DRUGS (11)
  1. CABOMETYX [Suspect]
     Active Substance: CABOZANTINIB S-MALATE
     Indication: Renal cancer
     Dosage: FREQUENCY : DAILY;?
     Route: 048
     Dates: start: 20250819, end: 20251001
  2. ELIQUIS [Concomitant]
     Active Substance: APIXABAN
  3. HYDROMORPHONE [Concomitant]
     Active Substance: HYDROMORPHONE
  4. LENVIMA [Concomitant]
     Active Substance: LENVATINIB
  5. MAGNESIUM OXIDE [Concomitant]
     Active Substance: MAGNESIUM OXIDE
  6. ONDANSETRON [Concomitant]
     Active Substance: ONDANSETRON
  7. TRAMADOL [Concomitant]
     Active Substance: TRAMADOL
  8. ACETAMINOPHEN [Concomitant]
     Active Substance: ACETAMINOPHEN
  9. BACLOFEN [Concomitant]
     Active Substance: BACLOFEN
  10. PANTOPRAZOLE [Concomitant]
     Active Substance: PANTOPRAZOLE
  11. GABAPENTIN [Concomitant]
     Active Substance: GABAPENTIN

REACTIONS (1)
  - Disease progression [None]

NARRATIVE: CASE EVENT DATE: 20251001
